FAERS Safety Report 13625578 (Version 1)
Quarter: 2017Q2

REPORT INFORMATION
  Report Type: Spontaneous
  Country: GB (occurrence: GB)
  Receive Date: 20170608
  Receipt Date: 20170608
  Transmission Date: 20170830
  Serious: Yes (Other)
  Sender: FDA-Public Use
  Company Number: GB-TEVA-774287ACC

PATIENT
  Age: 44 Year
  Sex: Female
  Weight: 51.71 kg

DRUGS (3)
  1. SERTRALINE [Suspect]
     Active Substance: SERTRALINE HYDROCHLORIDE
     Indication: FIBROMYALGIA
     Route: 048
     Dates: start: 20170511, end: 20170518
  2. GABAPENTIN. [Concomitant]
     Active Substance: GABAPENTIN
  3. PIZOTIFEN [Concomitant]
     Active Substance: PIZOTYLINE

REACTIONS (5)
  - Condition aggravated [Recovering/Resolving]
  - Decreased appetite [Recovering/Resolving]
  - Weight decreased [Recovering/Resolving]
  - Pruritus generalised [Recovering/Resolving]
  - Depressed mood [Recovering/Resolving]

NARRATIVE: CASE EVENT DATE: 20170511
